FAERS Safety Report 26028261 (Version 1)
Quarter: 2025Q4

REPORT INFORMATION
  Report Type: Spontaneous
  Country: US (occurrence: US)
  Receive Date: 20251111
  Receipt Date: 20251111
  Transmission Date: 20260118
  Serious: No
  Sender: Alora Pharma
  Company Number: US-ACELLA PHARMACEUTICALS, LLC-2025ALO02462

PATIENT
  Sex: Male

DRUGS (1)
  1. CICLOPIROX [Suspect]
     Active Substance: CICLOPIROX
     Indication: Fungal infection
     Dosage: 1 DOSAGE FORM, 1X/DAY AT NIGHT
     Route: 061
     Dates: start: 202408

REACTIONS (3)
  - Onychomycosis [Not Recovered/Not Resolved]
  - Onychomalacia [Not Recovered/Not Resolved]
  - Drug ineffective [Unknown]
